FAERS Safety Report 7763041-2 (Version None)
Quarter: 2011Q3

REPORT INFORMATION
  Report Type: 
  Country: None (occurrence: None)
  Receive Date: 20110920
  Receipt Date: 20110916
  Transmission Date: 20111222
  Serious: Yes (Other)
  Sender: FDA-Public Use
  Company Number: FR-ABBOTT-11P-056-0855335-00

PATIENT
  Sex: Male

DRUGS (11)
  1. OLMIFON [Concomitant]
     Indication: PRODUCT USED FOR UNKNOWN INDICATION
  2. PRAMIPEXOLE DIHYDROCHLORIDE [Concomitant]
     Indication: PRODUCT USED FOR UNKNOWN INDICATION
  3. TRUVADA [Concomitant]
     Indication: PRODUCT USED FOR UNKNOWN INDICATION
  4. AZILECT [Interacting]
     Indication: PARKINSON'S DISEASE
     Route: 048
     Dates: start: 20100201, end: 20110401
  5. UTEPLEX [Concomitant]
     Indication: PRODUCT USED FOR UNKNOWN INDICATION
  6. MIANSERINE [Concomitant]
     Indication: PRODUCT USED FOR UNKNOWN INDICATION
  7. NORVIR [Suspect]
     Indication: HIV INFECTION
     Route: 048
     Dates: start: 20110201
  8. TRIVASTAL [Concomitant]
     Indication: PRODUCT USED FOR UNKNOWN INDICATION
  9. MODOPAR [Concomitant]
     Indication: PRODUCT USED FOR UNKNOWN INDICATION
  10. ALPRAZOLAM [Concomitant]
     Indication: PRODUCT USED FOR UNKNOWN INDICATION
  11. PREZISTA [Concomitant]
     Indication: PRODUCT USED FOR UNKNOWN INDICATION

REACTIONS (2)
  - DRUG INTERACTION [None]
  - THROMBOCYTOPENIA [None]
